FAERS Safety Report 7575335-4 (Version None)
Quarter: 2011Q2

REPORT INFORMATION
  Report Type: 
  Country: None (occurrence: None)
  Receive Date: 20110627
  Receipt Date: 20110617
  Transmission Date: 20111010
  Serious: Yes (Hospitalization, Other)
  Sender: FDA-Public Use
  Company Number: US-ASTRAZENECA-2011SE18091

PATIENT
  Age: 56 Year
  Sex: Male
  Weight: 68 kg

DRUGS (3)
  1. SEROQUEL [Suspect]
     Route: 048
  2. LISINOPRIL [Concomitant]
  3. FLUOXETINE HCL [Concomitant]

REACTIONS (8)
  - OFF LABEL USE [None]
  - THERAPEUTIC RESPONSE UNEXPECTED [None]
  - JOINT DISLOCATION [None]
  - SOMNOLENCE [None]
  - INSOMNIA [None]
  - DRUG DOSE OMISSION [None]
  - FOREARM FRACTURE [None]
  - ROAD TRAFFIC ACCIDENT [None]
